FAERS Safety Report 13411583 (Version 2)
Quarter: 2017Q4

REPORT INFORMATION
  Report Type: Spontaneous
  Country: US (occurrence: US)
  Receive Date: 20170406
  Receipt Date: 20171123
  Transmission Date: 20180320
  Serious: No
  Sender: FDA-Public Use
  Company Number: US-JNJFOC-20170302863

PATIENT
  Sex: Male

DRUGS (14)
  1. RISPERDAL [Suspect]
     Active Substance: RISPERIDONE
     Indication: MAJOR DEPRESSION
     Dosage: AT VARYING DOSES OF 0.5 MG TO 2 MG
     Route: 048
     Dates: start: 20050928, end: 20080504
  2. RISPERDAL M-TAB [Suspect]
     Active Substance: RISPERIDONE
     Indication: PSYCHOTIC DISORDER
     Dosage: WHEN NECESSARY (PRN)
     Route: 048
     Dates: start: 20060508
  3. RISPERDAL [Suspect]
     Active Substance: RISPERIDONE
     Indication: PSYCHOTIC DISORDER
     Dosage: AT VARYING DOSES OF 0.5 MG TO 2 MG
     Route: 048
     Dates: start: 20050928, end: 20080504
  4. RISPERDAL M-TAB [Suspect]
     Active Substance: RISPERIDONE
     Indication: AUTISM SPECTRUM DISORDER
     Dosage: WHEN NECESSARY (PRN)
     Route: 048
     Dates: start: 20060508
  5. RISPERDAL M-TAB [Suspect]
     Active Substance: RISPERIDONE
     Indication: BIPOLAR DISORDER
     Dosage: WHEN NECESSARY (PRN)
     Route: 048
     Dates: start: 20060508
  6. RISPERDAL [Suspect]
     Active Substance: RISPERIDONE
     Indication: AUTISM SPECTRUM DISORDER
     Dosage: AT VARYING DOSES OF 0.5 MG TO 2 MG
     Route: 048
     Dates: start: 20050928, end: 20080504
  7. RISPERDAL M-TAB [Suspect]
     Active Substance: RISPERIDONE
     Indication: MAJOR DEPRESSION
     Dosage: WHEN NECESSARY (PRN)
     Route: 048
     Dates: start: 20060508
  8. RISPERDAL [Suspect]
     Active Substance: RISPERIDONE
     Indication: OPPOSITIONAL DEFIANT DISORDER
     Dosage: AT VARYING DOSES OF 0.5 MG TO 2 MG
     Route: 048
     Dates: start: 20050928, end: 20080504
  9. RISPERDAL [Suspect]
     Active Substance: RISPERIDONE
     Indication: BIPOLAR DISORDER
     Dosage: AT VARYING DOSES OF 0.5 MG TO 2 MG
     Route: 048
     Dates: start: 20050928, end: 20080504
  10. RISPERDAL [Suspect]
     Active Substance: RISPERIDONE
     Indication: ATTENTION DEFICIT/HYPERACTIVITY DISORDER
     Dosage: AT VARYING DOSES OF 0.5 MG TO 2 MG
     Route: 048
     Dates: start: 20050928, end: 20080504
  11. RISPERDAL M-TAB [Suspect]
     Active Substance: RISPERIDONE
     Indication: OPPOSITIONAL DEFIANT DISORDER
     Dosage: WHEN NECESSARY (PRN)
     Route: 048
     Dates: start: 20060508
  12. RISPERDAL [Suspect]
     Active Substance: RISPERIDONE
     Indication: CONDUCT DISORDER
     Dosage: AT VARYING DOSES OF 0.5 MG TO 2 MG
     Route: 048
     Dates: start: 20050928, end: 20080504
  13. RISPERDAL M-TAB [Suspect]
     Active Substance: RISPERIDONE
     Indication: CONDUCT DISORDER
     Dosage: WHEN NECESSARY (PRN)
     Route: 048
     Dates: start: 20060508
  14. RISPERDAL M-TAB [Suspect]
     Active Substance: RISPERIDONE
     Indication: ATTENTION DEFICIT/HYPERACTIVITY DISORDER
     Dosage: WHEN NECESSARY (PRN)
     Route: 048
     Dates: start: 20060508

REACTIONS (2)
  - Emotional disorder [Unknown]
  - Gynaecomastia [Unknown]
